FAERS Safety Report 9934937 (Version 1)
Quarter: 2014Q1

REPORT INFORMATION
  Report Type: Spontaneous
  Country: US (occurrence: US)
  Receive Date: 20140228
  Receipt Date: 20140228
  Transmission Date: 20141002
  Serious: Yes (Hospitalization, Other)
  Sender: FDA-Public Use
  Company Number: US-TEVA-465260USA

PATIENT
  Sex: Male

DRUGS (1)
  1. COPAXONE [Suspect]

REACTIONS (6)
  - Multiple sclerosis relapse [Unknown]
  - Vision blurred [Unknown]
  - Eye movement disorder [Unknown]
  - Diplopia [Unknown]
  - Dysphonia [Unknown]
  - Pain [Unknown]
